FAERS Safety Report 14245359 (Version 1)
Quarter: 2017Q4

REPORT INFORMATION
  Report Type: Spontaneous
  Country: US (occurrence: US)
  Receive Date: 20171202
  Receipt Date: 20171202
  Transmission Date: 20180321
  Serious: No
  Sender: FDA-Public Use
  Company Number: US-ENDO PHARMACEUTICALS INC-2017-004666

PATIENT
  Sex: Male

DRUGS (3)
  1. XIAFLEX [Suspect]
     Active Substance: COLLAGENASE CLOSTRIDIUM HISTOLYTICUM
     Dosage: UNK UNKNOWN, UNKNOWN (SECOND INJECTION CYCEL ONE)
     Route: 065
     Dates: start: 20170620, end: 20170620
  2. XIAFLEX [Suspect]
     Active Substance: COLLAGENASE CLOSTRIDIUM HISTOLYTICUM
     Indication: PEYRONIE^S DISEASE
     Dosage: UNK UNKNOWN, UNKNOWN (FIRST INJECTION CYCEL ONE)
     Route: 065
  3. XIAFLEX [Suspect]
     Active Substance: COLLAGENASE CLOSTRIDIUM HISTOLYTICUM
     Dosage: UNK UNKNOWN, UNKNOWN (FIRST INJECTION CYCEL TWO)
     Route: 065
     Dates: start: 20170823, end: 20170823

REACTIONS (4)
  - Blister [Recovered/Resolved]
  - Penile erythema [Recovered/Resolved]
  - Penile blister [Recovered/Resolved]
  - Scrotal erythema [Recovered/Resolved]

NARRATIVE: CASE EVENT DATE: 2017
